FAERS Safety Report 13850966 (Version 1)
Quarter: 2017Q3

REPORT INFORMATION
  Report Type: Spontaneous
  Country: US (occurrence: US)
  Receive Date: 20170809
  Receipt Date: 20170809
  Transmission Date: 20171127
  Serious: No
  Sender: FDA-Public Use
  Company Number: US-BAUSCH-BL-2017-014480

PATIENT
  Sex: Female

DRUGS (1)
  1. DHE-45 [Suspect]
     Active Substance: DIHYDROERGOTAMINE MESYLATE
     Indication: MIGRAINE
     Dosage: EVERY EIGHT HOURS
     Route: 042
     Dates: start: 201701, end: 20170505

REACTIONS (1)
  - Therapeutic response unexpected [Unknown]
